FAERS Safety Report 21853351 (Version 1)
Quarter: 2023Q1

REPORT INFORMATION
  Report Type: Spontaneous
  Country: US (occurrence: US)
  Receive Date: 20230112
  Receipt Date: 20230112
  Transmission Date: 20230418
  Serious: No
  Sender: FDA-Public Use
  Company Number: US-SA-SAC20230109000152

PATIENT
  Age: 17 Year
  Sex: Female
  Weight: 90 kg

DRUGS (1)
  1. DUPIXENT [Suspect]
     Active Substance: DUPILUMAB
     Indication: Dermatitis atopic
     Dosage: 300 MG QOW
     Route: 058
     Dates: start: 202209, end: 202212

REACTIONS (3)
  - Injection site pain [Unknown]
  - COVID-19 [Recovered/Resolved]
  - Dermatitis atopic [Unknown]

NARRATIVE: CASE EVENT DATE: 20221012
